FAERS Safety Report 4684118-4 (Version None)
Quarter: 2005Q2

REPORT INFORMATION
  Report Type: 
  Country: None (occurrence: None)
  Receive Date: 20050527
  Receipt Date: 20040206
  Transmission Date: 20051028
  Serious: Yes (Other)
  Sender: FDA-Public Use
  Company Number: 2004008666

PATIENT
  Age: 11 Year
  Sex: Male
  Weight: 40 kg

DRUGS (6)
  1. FOSPHENYTOIN SODIUM [Suspect]
     Indication: CONVULSION PROPHYLAXIS
     Dosage: 220 MG (BID), INTRAVENOUS
     Route: 042
     Dates: start: 20040101
  2. VANCOMYCIN [Concomitant]
  3. PANTOPRAZOLE SODIUM [Concomitant]
  4. MORPHINE [Concomitant]
  5. ACETAMINOPHEN [Concomitant]
  6. ALL OTHER THERAPEUTIC PRODUCTS (ALL OTHER THERAPEUTIC PRODUCTS) [Concomitant]

REACTIONS (2)
  - ABDOMINAL DISTENSION [None]
  - RASH [None]
